FAERS Safety Report 7499158-X (Version None)
Quarter: 2011Q2

REPORT INFORMATION
  Report Type: 
  Country: None (occurrence: None)
  Receive Date: 20110516
  Receipt Date: 20110502
  Transmission Date: 20111010
  Serious: Yes (Hospitalization)
  Sender: FDA-Public Use
  Company Number: 020216

PATIENT
  Sex: Female
  Weight: 71.4 kg

DRUGS (7)
  1. HYDROCHLOROTHIAZIDE [Concomitant]
  2. CARBATROL [Concomitant]
  3. CALCIUM CARBONATE [Concomitant]
  4. LACOSAMIDE [Suspect]
     Indication: PARTIAL SEIZURES
     Dosage: (100 MG BID ORAL), (50 MG BID ORAL)
     Route: 048
     Dates: start: 20101011, end: 20101012
  5. LACOSAMIDE [Suspect]
     Indication: PARTIAL SEIZURES
     Dosage: (100 MG BID ORAL), (50 MG BID ORAL)
     Route: 048
     Dates: start: 20101004, end: 20101011
  6. KEPPRA [Concomitant]
  7. NIFEDIPINE [Concomitant]

REACTIONS (7)
  - CHEST DISCOMFORT [None]
  - CHEST PAIN [None]
  - ELECTROCARDIOGRAM ST SEGMENT [None]
  - HYPERHIDROSIS [None]
  - BLOOD PRESSURE INCREASED [None]
  - LEFT ATRIAL DILATATION [None]
  - DIZZINESS [None]
